FAERS Safety Report 19929219 (Version 1)
Quarter: 2021Q4

REPORT INFORMATION
  Report Type: Spontaneous
  Country: FR (occurrence: FR)
  Receive Date: 20211007
  Receipt Date: 20211007
  Transmission Date: 20220303
  Serious: Yes (Hospitalization)
  Sender: FDA-Public Use
  Company Number: None

PATIENT
  Age: 78 Year
  Sex: Male
  Weight: 92 kg

DRUGS (2)
  1. ACYCLOVIR [Suspect]
     Active Substance: ACYCLOVIR
     Indication: Ophthalmic herpes zoster
     Dosage: 1 GRAM, Q8H
     Route: 048
     Dates: start: 20210314, end: 20210314
  2. PFIZER-BIONTECH COVID-19 VACCINE [Suspect]
     Active Substance: TOZINAMERAN
     Indication: COVID-19 immunisation
     Dosage: 1 DOSAGE FORM
     Route: 030
     Dates: start: 20210311

REACTIONS (2)
  - Acute generalised exanthematous pustulosis [Recovered/Resolved]
  - Ophthalmic herpes zoster [Recovering/Resolving]

NARRATIVE: CASE EVENT DATE: 20210312
